FAERS Safety Report 8134440-4 (Version None)
Quarter: 2012Q1

REPORT INFORMATION
  Report Type: 
  Country: None (occurrence: None)
  Receive Date: 20120214
  Receipt Date: 20120214
  Transmission Date: 20120608
  Serious: Yes (Other)
  Sender: FDA-Public Use
  Company Number: None

PATIENT
  Age: 53 Year
  Sex: Female

DRUGS (1)
  1. BUPIVACAINE HCL [Suspect]
     Dates: start: 20111206, end: 20120209

REACTIONS (2)
  - DRUG DISPENSING ERROR [None]
  - PRODUCT COMPOUNDING QUALITY ISSUE [None]
